FAERS Safety Report 11179150 (Version 5)
Quarter: 2019Q3

REPORT INFORMATION
  Report Type: Report from Study
  Country: US (occurrence: US)
  Receive Date: 20150610
  Receipt Date: 20190911
  Transmission Date: 20191004
  Serious: Yes (Other)
  Sender: FDA-Public Use
  Company Number: US-SA-2015SA079281

PATIENT
  Age: 29 Year
  Sex: Male

DRUGS (2)
  1. ALEMTUZUMAB [Suspect]
     Active Substance: ALEMTUZUMAB
     Indication: MULTIPLE SCLEROSIS
     Dosage: 12 MG,QD
     Route: 041
     Dates: start: 20150601, end: 20150605
  2. ALEMTUZUMAB [Suspect]
     Active Substance: ALEMTUZUMAB
     Dosage: 12 MG, QD
     Route: 041
     Dates: start: 20160531, end: 20160602

REACTIONS (4)
  - Pain [Unknown]
  - Haemoptysis [Recovered/Resolved]
  - Hiccups [Unknown]
  - Chest discomfort [Unknown]

NARRATIVE: CASE EVENT DATE: 201506
